FAERS Safety Report 15943583 (Version 1)
Quarter: 2019Q1

REPORT INFORMATION
  Report Type: Spontaneous
  Country: US (occurrence: US)
  Receive Date: 20190122
  Receipt Date: 20190122
  Transmission Date: 20190417
  Serious: No
  Sender: FDA-Public Use
  Company Number: None

PATIENT
  Age: 55 Year
  Sex: Female

DRUGS (2)
  1. STELARA [Suspect]
     Active Substance: USTEKINUMAB
     Indication: PSORIATIC ARTHROPATHY
     Dosage: ?          OTHER FREQUENCY:WK0+4;?
     Route: 058
     Dates: start: 201812
  2. STELARA [Suspect]
     Active Substance: USTEKINUMAB
     Indication: PSORIATIC ARTHROPATHY

REACTIONS (3)
  - Vomiting [None]
  - Malaise [None]
  - Diarrhoea [None]
